FAERS Safety Report 6617029-5 (Version None)
Quarter: 2010Q1

REPORT INFORMATION
  Report Type: 
  Country: None (occurrence: None)
  Receive Date: 20100306
  Receipt Date: 20100115
  Transmission Date: 20100710
  Serious: Yes (Other)
  Sender: FDA-Public Use
  Company Number: IE-JNJFOC-20091203786

PATIENT
  Age: 71 Year
  Sex: Female

DRUGS (8)
  1. TAVANIC [Suspect]
     Indication: DRUG USE FOR UNKNOWN INDICATION
     Route: 048
     Dates: start: 20091019
  2. TRAMADOL HCL [Concomitant]
     Route: 065
  3. GLUCOSAMINE [Concomitant]
     Route: 065
  4. NEURONTIN [Concomitant]
     Route: 065
  5. PROTIUM [Concomitant]
     Route: 065
  6. AMITRIPTYLINE HCL [Concomitant]
     Route: 065
  7. STILNOCT [Concomitant]
     Route: 065
  8. ARTHROTEC [Concomitant]
     Route: 065

REACTIONS (4)
  - JOINT SPRAIN [None]
  - MASS [None]
  - PAIN [None]
  - TENDON RUPTURE [None]
